FAERS Safety Report 21906401 (Version 4)
Quarter: 2023Q1

REPORT INFORMATION
  Report Type: Report from Study
  Country: US (occurrence: US)
  Receive Date: 20230125
  Receipt Date: 20230314
  Transmission Date: 20230418
  Serious: No
  Sender: FDA-Public Use
  Company Number: US-002147023-NVSC2023US016200

PATIENT
  Sex: Female

DRUGS (2)
  1. PROMACTA [Suspect]
     Active Substance: ELTROMBOPAG OLAMINE
     Indication: Immune thrombocytopenia
     Dosage: 25 MG, QD
     Route: 048
     Dates: start: 20230121
  2. PROMACTA [Suspect]
     Active Substance: ELTROMBOPAG OLAMINE
     Dosage: 50 MG, QD
     Route: 048

REACTIONS (9)
  - Arthralgia [Unknown]
  - Pain [Unknown]
  - Insomnia [Unknown]
  - Memory impairment [Unknown]
  - Platelet count decreased [Unknown]
  - Urinary tract infection [Unknown]
  - Micturition urgency [Unknown]
  - Cough [Unknown]
  - Product dose omission issue [Unknown]
